FAERS Safety Report 7958837-8 (Version None)
Quarter: 2011Q4

REPORT INFORMATION
  Report Type: 
  Country: None (occurrence: None)
  Receive Date: 20111206
  Receipt Date: 20111128
  Transmission Date: 20120403
  Serious: Yes (Other)
  Sender: FDA-Public Use
  Company Number: US-US-EMD SERONO, INC.-7097319

PATIENT
  Sex: Female

DRUGS (3)
  1. REBIF [Suspect]
     Indication: MULTIPLE SCLEROSIS
  2. ANTIDEPRESSANT [Concomitant]
     Indication: SMOKING CESSATION THERAPY
     Dates: start: 20110101
  3. REBIF [Suspect]
     Route: 058
     Dates: start: 20110819

REACTIONS (4)
  - PROCEDURAL COMPLICATION [None]
  - PAIN IN EXTREMITY [None]
  - INFLUENZA [None]
  - INJECTION SITE ERYTHEMA [None]
